FAERS Safety Report 22321078 (Version 9)
Quarter: 2024Q2

REPORT INFORMATION
  Report Type: Report from Study
  Country: CN (occurrence: CN)
  Receive Date: 20230515
  Receipt Date: 20240509
  Transmission Date: 20240716
  Serious: Yes (Other)
  Sender: FDA-Public Use
  Company Number: CN-FOSUNKITE-FOSUNKITE-20230145

PATIENT
  Age: 56 Year
  Sex: Female

DRUGS (5)
  1. AXICABTAGENE CILOLEUCEL [Suspect]
     Active Substance: AXICABTAGENE CILOLEUCEL
     Indication: Non-Hodgkin^s lymphoma
     Dosage: 1.1 X 10^8 CELLS (NUMBER OF CAR-T CELLS)
     Route: 042
     Dates: start: 20221230, end: 20221230
  2. FLUDARABINE PHOSPHATE [Suspect]
     Active Substance: FLUDARABINE PHOSPHATE
     Indication: Lymphodepletion
     Dosage: 48.3 MG
     Route: 041
     Dates: start: 20221225, end: 20221227
  3. CYCLOPHOSPHAMIDE [Suspect]
     Active Substance: CYCLOPHOSPHAMIDE
     Indication: Lymphodepletion
     Dosage: 805 MG
     Route: 041
     Dates: start: 20221225, end: 20221227
  4. ZANUBRUTINIB [Concomitant]
     Active Substance: ZANUBRUTINIB
     Indication: Non-Hodgkin^s lymphoma
     Dosage: CUMULATIVE DOSE AND TREATMENT PERIOD WERE UNKNOWN
     Route: 048
     Dates: start: 20221219, end: 20221230
  5. ZANUBRUTINIB [Concomitant]
     Active Substance: ZANUBRUTINIB
     Dosage: CUMULATIVE DOSE AND TREATMENT PERIOD WERE UNKNOWN
     Route: 048
     Dates: start: 20221231

REACTIONS (92)
  - Keratitis [Recovered/Resolved]
  - Keratitis [Recovered/Resolved]
  - Renal hydrocele [Recovered/Resolved]
  - Escherichia infection [Recovered/Resolved]
  - Pyelonephritis [Recovered/Resolved]
  - Hypokalaemia [Not Recovered/Not Resolved]
  - Cardiac failure [Not Recovered/Not Resolved]
  - Hypoxia [Not Recovered/Not Resolved]
  - Hypoxia [Recovered/Resolved]
  - Hypoxia [Not Recovered/Not Resolved]
  - Respiratory failure [Not Recovered/Not Resolved]
  - Cytokine release syndrome [Recovered/Resolved]
  - Pneumonia [Not Recovered/Not Resolved]
  - White blood cell count decreased [Recovered/Resolved]
  - Neutrophil count decreased [Recovered/Resolved]
  - Conjunctival hyperaemia [Recovered/Resolved]
  - Anaemia [Not Recovered/Not Resolved]
  - Platelet count decreased [Not Recovered/Not Resolved]
  - Aspartate aminotransferase increased [Not Recovered/Not Resolved]
  - Hypoalbuminaemia [Not Recovered/Not Resolved]
  - Hypophosphataemia [Recovered/Resolved]
  - C-reactive protein increased [Not Recovered/Not Resolved]
  - Lymphocyte count decreased [Recovered/Resolved]
  - Asthenia [Recovered/Resolved]
  - Dizziness [Recovered/Resolved]
  - Pruritus [Recovered/Resolved]
  - Hypoproteinaemia [Recovered/Resolved]
  - Hypomagnesaemia [Not Recovered/Not Resolved]
  - Blood immunoglobulin G decreased [Recovered/Resolved]
  - Cytokine increased [Not Recovered/Not Resolved]
  - Candida infection [Recovered/Resolved]
  - Cough [Recovered/Resolved]
  - Vision blurred [Recovered/Resolved]
  - Productive cough [Recovered/Resolved]
  - Conjunctival hyperaemia [Recovered/Resolved]
  - Pyrexia [Recovered/Resolved]
  - Pyrexia [Recovered/Resolved]
  - Pyrexia [Recovered/Resolved]
  - Pyrexia [Recovered/Resolved]
  - Pyrexia [Recovered/Resolved]
  - Pyrexia [Recovered/Resolved]
  - Pyrexia [Recovered/Resolved]
  - Pyrexia [Recovered/Resolved]
  - Pyrexia [Recovered/Resolved]
  - Oral pain [Recovered/Resolved]
  - Oral pain [Not Recovered/Not Resolved]
  - Dysphagia [Recovered/Resolved]
  - Sinusitis [Recovered/Resolved]
  - Vision blurred [Recovered/Resolved]
  - Asthenia [Recovered/Resolved]
  - Asthenia [Not Recovered/Not Resolved]
  - N-terminal prohormone brain natriuretic peptide increased [Not Recovered/Not Resolved]
  - Pleural effusion [Not Recovered/Not Resolved]
  - Listless [Recovered/Resolved]
  - Listless [Not Recovered/Not Resolved]
  - Oedema peripheral [Recovered/Resolved]
  - Oedema peripheral [Not Recovered/Not Resolved]
  - Face oedema [Recovered/Resolved]
  - Tachypnoea [Not Recovered/Not Resolved]
  - Diarrhoea [Recovered/Resolved]
  - Malnutrition [Recovered/Resolved]
  - Malnutrition [Not Recovered/Not Resolved]
  - Hypotension [Not Recovered/Not Resolved]
  - Gamma-glutamyltransferase increased [Not Recovered/Not Resolved]
  - Blood alkaline phosphatase increased [Recovered/Resolved]
  - Generalised oedema [Not Recovered/Not Resolved]
  - Somnolence [Not Recovered/Not Resolved]
  - Pharyngeal ulceration [Not Recovered/Not Resolved]
  - Pruritus [Recovered/Resolved]
  - Petechiae [Recovered/Resolved]
  - Erythema [Recovered/Resolved]
  - Ecchymosis [Recovered/Resolved]
  - Chest discomfort [Recovered/Resolved]
  - Chest discomfort [Not Recovered/Not Resolved]
  - Skin lesion [Not Recovered/Not Resolved]
  - Infection [Recovered/Resolved]
  - Conjunctivitis [Recovered/Resolved]
  - Purpura [Recovered/Resolved]
  - Rash [Recovered/Resolved]
  - Cough [Recovered/Resolved]
  - Skin lesion [Not Recovered/Not Resolved]
  - Skin lesion [Not Recovered/Not Resolved]
  - Dry mouth [Recovered/Resolved]
  - Dry eye [Recovered/Resolved]
  - Cough [Not Recovered/Not Resolved]
  - Productive cough [Not Recovered/Not Resolved]
  - Skin lesion [Recovered/Resolved]
  - Skin lesion [Recovered/Resolved]
  - Skin lesion [Recovered/Resolved]
  - Skin lesion [Not Recovered/Not Resolved]
  - Skin lesion [Recovered/Resolved]
  - Skin lesion [Recovered/Resolved]

NARRATIVE: CASE EVENT DATE: 20230102
